FAERS Safety Report 20905454 (Version 6)
Quarter: 2023Q2

REPORT INFORMATION
  Report Type: Other
  Country: GB (occurrence: None)
  Receive Date: 20220602
  Receipt Date: 20230606
  Transmission Date: 20230721
  Serious: Yes (Hospitalization)
  Sender: FDA-Public Use
  Company Number: GB-ROCHE-3106437

PATIENT
  Age: 25 Year
  Sex: Female

DRUGS (2)
  1. EVRYSDI [Suspect]
     Active Substance: RISDIPLAM
     Indication: Product used for unknown indication
     Route: 065
     Dates: start: 20220413
  2. EVRYSDI [Suspect]
     Active Substance: RISDIPLAM
     Route: 065
     Dates: start: 202204

REACTIONS (5)
  - Ovarian cyst [Unknown]
  - Ovarian cyst [Unknown]
  - Renal mass [Unknown]
  - Product dose omission issue [Unknown]
  - Malaise [Unknown]

NARRATIVE: CASE EVENT DATE: 20220413
